FAERS Safety Report 5765555-3 (Version None)
Quarter: 2008Q2

REPORT INFORMATION
  Report Type: 
  Country: None (occurrence: None)
  Receive Date: 20080611
  Receipt Date: 20080529
  Transmission Date: 20081010
  Serious: Yes (Other)
  Sender: FDA-Public Use
  Company Number: FR-BRISTOL-MYERS SQUIBB COMPANY-14218747

PATIENT
  Age: 55 Year
  Sex: Male

DRUGS (5)
  1. CYCLOPHOSPHAMIDE [Suspect]
     Indication: BURKITT'S LYMPHOMA
     Dates: start: 20050701
  2. ONCOVIN [Suspect]
     Indication: BURKITT'S LYMPHOMA
     Dates: start: 20050701
  3. METHOTREXATE [Suspect]
     Indication: BURKITT'S LYMPHOMA
     Dates: start: 20050701
  4. ADRIAMYCIN PFS [Suspect]
     Indication: BURKITT'S LYMPHOMA
     Dates: start: 20050701
  5. PREDNISOLONE [Suspect]
     Indication: BURKITT'S LYMPHOMA
     Dates: start: 20050701

REACTIONS (2)
  - LOGORRHOEA [None]
  - TACHYPHRENIA [None]
